FAERS Safety Report 4792461-3 (Version None)
Quarter: 2005Q4

REPORT INFORMATION
  Report Type: 
  Country: None (occurrence: None)
  Receive Date: 20051010
  Receipt Date: 20050707
  Transmission Date: 20060501
  Serious: Yes (Other)
  Sender: FDA-Public Use
  Company Number: GB-GLAXOSMITHKLINE-B0387098A

PATIENT
  Age: 49 Year
  Sex: Female

DRUGS (2)
  1. LAMICTAL [Suspect]
     Dosage: 150MG PER DAY
     Route: 048
     Dates: start: 20041223
  2. NO CONCURRENT MEDICATION [Concomitant]

REACTIONS (3)
  - IMMUNE SYSTEM DISORDER [None]
  - INFECTION [None]
  - NASOPHARYNGITIS [None]
